FAERS Safety Report 7491482-X (Version None)
Quarter: 2011Q2

REPORT INFORMATION
  Report Type: 
  Country: None (occurrence: None)
  Receive Date: 20110519
  Receipt Date: 20110513
  Transmission Date: 20111010
  Serious: Yes (Death, Hospitalization, Other)
  Sender: FDA-Public Use
  Company Number: PHHY2011CA01276

PATIENT
  Sex: Male

DRUGS (10)
  1. CLOZARIL [Suspect]
     Dates: start: 20001127
  2. VENTOLIN [Concomitant]
     Dosage: UNK
  3. SOFLAX [Concomitant]
  4. HALOPERIDOL [Concomitant]
  5. BENZTROPINE MESYLATE [Concomitant]
  6. PANTOPRAZOLE [Concomitant]
  7. MELOXICAM [Concomitant]
  8. CLOZARIL [Suspect]
     Indication: SCHIZOPHRENIA
     Route: 048
     Dates: start: 19930101
  9. FLOVENT [Concomitant]
  10. AZITHROMYCIN [Concomitant]

REACTIONS (15)
  - ARTHROPATHY [None]
  - OSTEOSCLEROSIS [None]
  - METASTASES TO LIVER [None]
  - FRACTURE [None]
  - OSTEOARTHRITIS [None]
  - LUNG NEOPLASM MALIGNANT [None]
  - HILAR LYMPHADENOPATHY [None]
  - LUNG DISORDER [None]
  - CYST [None]
  - THYMOMA MALIGNANT [None]
  - METASTASES TO BONE [None]
  - TENDERNESS [None]
  - DEATH [None]
  - PNEUMONIA [None]
  - MEDIASTINAL DISORDER [None]
